FAERS Safety Report 4682181-8 (Version None)
Quarter: 2005Q2

REPORT INFORMATION
  Report Type: 
  Country: None (occurrence: None)
  Receive Date: 20050603
  Receipt Date: 20050603
  Transmission Date: 20051028
  Serious: No
  Sender: FDA-Public Use
  Company Number: None

PATIENT
  Sex: Male
  Weight: 105.4 kg

DRUGS (5)
  1. LEUCOVORIN CALCIUM [Suspect]
     Indication: GASTRIC CANCER
     Dosage: IVP 20 MG/M2 ON DAYS `1 THROUGH 5
     Route: 042
     Dates: start: 20050411
  2. FLUOROURACIL [Suspect]
     Dosage: IVP 425 MG/M2 ON DAYS 1 T HROUGH 5 OE EACH 28 DAY CYCLE. CYCLE 2 CONTINUOUS 5FU+RT
     Route: 042
  3. RADIATION [Suspect]
  4. REGLAN [Concomitant]
  5. COMPAZINE [Concomitant]

REACTIONS (6)
  - ABDOMINAL PAIN LOWER [None]
  - DEHYDRATION [None]
  - GASTRIC OUTLET OBSTRUCTION [None]
  - NAUSEA [None]
  - NODULE [None]
  - VOMITING [None]
